APPROVED DRUG PRODUCT: MINOCYCLINE HYDROCHLORIDE
Active Ingredient: MINOCYCLINE HYDROCHLORIDE
Strength: EQ 50MG BASE
Dosage Form/Route: TABLET;ORAL
Application: A065436 | Product #001 | TE Code: AB
Applicant: CHARTWELL RX SCIENCES LLC
Approved: Dec 26, 2007 | RLD: No | RS: No | Type: RX